FAERS Safety Report 6392265-4 (Version None)
Quarter: 2009Q4

REPORT INFORMATION
  Report Type: 
  Country: None (occurrence: None)
  Receive Date: 20091005
  Receipt Date: 20090925
  Transmission Date: 20100525
  Serious: Yes (Hospitalization)
  Sender: FDA-Public Use
  Company Number: 2009JP004549

PATIENT
  Age: 82 Year
  Sex: Male

DRUGS (9)
  1. VESICARE [Suspect]
     Indication: HYPERTONIC BLADDER
     Dosage: 2.5 MG, UID/QD, ORAL; 5 MG, UID/QD, ORAL; 10 MG, UID/QD, ORAL; 5 MG, UID/QD, ORAL
     Route: 048
     Dates: start: 20081211, end: 20081217
  2. VESICARE [Suspect]
     Indication: HYPERTONIC BLADDER
     Dosage: 2.5 MG, UID/QD, ORAL; 5 MG, UID/QD, ORAL; 10 MG, UID/QD, ORAL; 5 MG, UID/QD, ORAL
     Route: 048
     Dates: start: 20081218, end: 20090107
  3. VESICARE [Suspect]
     Indication: HYPERTONIC BLADDER
     Dosage: 2.5 MG, UID/QD, ORAL; 5 MG, UID/QD, ORAL; 10 MG, UID/QD, ORAL; 5 MG, UID/QD, ORAL
     Route: 048
     Dates: start: 20090108, end: 20090115
  4. VESICARE [Suspect]
     Indication: HYPERTONIC BLADDER
     Dosage: 2.5 MG, UID/QD, ORAL; 5 MG, UID/QD, ORAL; 10 MG, UID/QD, ORAL; 5 MG, UID/QD, ORAL
     Route: 048
     Dates: start: 20090116, end: 20090129
  5. TAMSULOSIN HCL [Suspect]
     Indication: RESIDUAL URINE
     Dosage: 0.1 MG, ORAL
     Route: 048
     Dates: start: 20090115, end: 20090129
  6. ZOSYN [Suspect]
     Dosage: 9 G
     Dates: start: 20081225, end: 20090119
  7. SOLDEM 3A (SODIUM LACTATE, POTASSIUM CHLORIDE, CARBOHYDRATES NOS, SODI [Concomitant]
  8. POTACOL-R (SODIUM LACTATE, CALCIUM CHLORIDE ANHYDROUS, SODIUM CHLORIDE [Concomitant]
  9. FIRSTCIN (CEFOZOPRAN HYDROCHLORIDE) [Concomitant]

REACTIONS (4)
  - ALANINE AMINOTRANSFERASE INCREASED [None]
  - ASPARTATE AMINOTRANSFERASE INCREASED [None]
  - HEPATIC FUNCTION ABNORMAL [None]
  - RESIDUAL URINE [None]
